FAERS Safety Report 10560446 (Version 2)
Quarter: 2020Q4

REPORT INFORMATION
  Report Type: Report from Study
  Country: CA (occurrence: CA)
  Receive Date: 20141103
  Receipt Date: 20201009
  Transmission Date: 20210113
  Serious: Yes (Death, Hospitalization, Other)
  Sender: FDA-Public Use
  Company Number: CA-PFIZER INC-2014302290

PATIENT
  Age: 74 Year
  Sex: Female

DRUGS (11)
  1. SANDOSTATIN LAR DEPOT [Suspect]
     Active Substance: OCTREOTIDE ACETATE
     Dosage: 30 MG, MONTHLY
     Route: 030
  2. TEMOZOLOMIDE. [Concomitant]
     Active Substance: TEMOZOLOMIDE
     Dosage: 100 MG, 1X/DAY
     Route: 048
  3. VITAMIN B12 [Concomitant]
     Active Substance: CYANOCOBALAMIN
     Dosage: 1200 UG, 1X/DAY
     Route: 048
  4. ONDANSETRON HCL [Concomitant]
     Active Substance: ONDANSETRON HYDROCHLORIDE
     Dosage: 8 MG, 1X/DAY
     Route: 048
  5. SANDOSTATIN LAR DEPOT [Suspect]
     Active Substance: OCTREOTIDE ACETATE
     Indication: PANCREATIC NEUROENDOCRINE TUMOUR METASTATIC
     Dosage: 30 MG, ONCE EVERY 1 MONTHS
     Route: 030
  6. CAPECITABINE. [Concomitant]
     Active Substance: CAPECITABINE
     Dosage: 500 MG, 2X/DAY
     Route: 065
  7. SANDOSTATIN LAR DEPOT [Suspect]
     Active Substance: OCTREOTIDE ACETATE
     Indication: PANCREATIC NEUROENDOCRINE TUMOUR METASTATIC
     Dosage: 30 MG, ONCE EVERY 1 MONTHS
     Route: 030
  8. CAPECITABINE. [Concomitant]
     Active Substance: CAPECITABINE
     Dosage: 2 DF
     Route: 048
  9. SANDOSTATIN LAR DEPOT [Suspect]
     Active Substance: OCTREOTIDE ACETATE
     Indication: PANCREATIC NEUROENDOCRINE TUMOUR METASTATIC
     Dosage: 30 MG, MONTHLY
     Route: 030
  10. CAPECITABINE. [Concomitant]
     Active Substance: CAPECITABINE
     Dosage: 150 MG
  11. SUTENT [Suspect]
     Active Substance: SUNITINIB MALATE
     Dosage: 12.5 MG, UNK

REACTIONS (36)
  - Loss of consciousness [Fatal]
  - Musculoskeletal pain [Fatal]
  - Seizure [Fatal]
  - Dizziness [Unknown]
  - Hypertension [Fatal]
  - Cerebral haemorrhage [Fatal]
  - Back pain [Fatal]
  - Gait disturbance [Fatal]
  - Balance disorder [Fatal]
  - General physical health deterioration [Fatal]
  - Movement disorder [Fatal]
  - Pain [Fatal]
  - Stress [Fatal]
  - Urinary tract infection [Fatal]
  - Fatigue [Unknown]
  - Hypoglycaemia [Fatal]
  - Needle issue [Fatal]
  - Anaemia [Unknown]
  - Disorientation [Fatal]
  - Malaise [Fatal]
  - Arthralgia [Fatal]
  - Body temperature decreased [Fatal]
  - Gait inability [Fatal]
  - Herpes zoster [Fatal]
  - Hypoaesthesia [Fatal]
  - Injection site pain [Fatal]
  - Rhinorrhoea [Fatal]
  - Sensory loss [Fatal]
  - Nausea [Unknown]
  - Diabetes mellitus [Unknown]
  - Blood pressure diastolic decreased [Fatal]
  - Nasopharyngitis [Fatal]
  - Pallor [Unknown]
  - Hypotension [Unknown]
  - Fall [Fatal]
  - Pain in extremity [Fatal]
